FAERS Safety Report 7729504-0 (Version None)
Quarter: 2011Q3

REPORT INFORMATION
  Report Type: 
  Country: None (occurrence: None)
  Receive Date: 20110906
  Receipt Date: 20110826
  Transmission Date: 20111222
  Serious: Yes (Hospitalization)
  Sender: FDA-Public Use
  Company Number: US-JNJFOC-20110812641

PATIENT
  Age: 64 Year
  Sex: Female
  Weight: 76.2 kg

DRUGS (3)
  1. TYLENOL-500 [Suspect]
     Indication: ARTHRITIS
     Route: 048
     Dates: start: 20091201, end: 20100103
  2. TYLENOL-500 [Suspect]
     Route: 048
  3. SYNTHROID [Concomitant]
     Indication: THYROID DISORDER

REACTIONS (4)
  - URINE ODOUR ABNORMAL [None]
  - RENAL NEOPLASM [None]
  - PRODUCT QUALITY ISSUE [None]
  - GASTRIC CANCER [None]
